FAERS Safety Report 5287486-8 (Version None)
Quarter: 2007Q1

REPORT INFORMATION
  Report Type: 
  Country: None (occurrence: None)
  Receive Date: 20070116
  Receipt Date: 20060920
  Transmission Date: 20070707
  Serious: No
  Sender: FDA-Public Use
  Company Number: 2006SP003362

PATIENT
  Sex: Male
  Weight: 86.1834 kg

DRUGS (3)
  1. LUNESTA [Suspect]
     Indication: INSOMNIA
     Dosage: 2 MG; ORAL
     Route: 048
     Dates: start: 20060918
  2. AMBIEN [Concomitant]
  3. LISINOPRIL [Concomitant]

REACTIONS (1)
  - MIDDLE INSOMNIA [None]
